FAERS Safety Report 4922509-4 (Version None)
Quarter: 2006Q1

REPORT INFORMATION
  Report Type: 
  Country: None (occurrence: None)
  Receive Date: 20060224
  Receipt Date: 20060201
  Transmission Date: 20060701
  Serious: Yes (Other)
  Sender: FDA-Public Use
  Company Number: JP-ROCHE-435157

PATIENT
  Age: 10 Year
  Sex: Female

DRUGS (4)
  1. TAMIFLU [Suspect]
     Indication: INFLUENZA
     Route: 048
     Dates: start: 20060127, end: 20060130
  2. KLARICID [Concomitant]
     Dosage: ORAL FORMULATION
     Route: 048
  3. DEXTROMETHORPHAN HYDROBROMIDE [Concomitant]
     Dosage: ORAL FORMULATION
     Route: 048
  4. MUCOSOLVAN [Concomitant]
     Dosage: ORAL FORMULATION
     Route: 048

REACTIONS (3)
  - ANXIETY [None]
  - EMOTIONAL DISORDER [None]
  - REGRESSIVE BEHAVIOUR [None]
